FAERS Safety Report 9718960 (Version 1)
Quarter: 2013Q4

REPORT INFORMATION
  Report Type: Spontaneous
  Country: US (occurrence: US)
  Receive Date: 20131127
  Receipt Date: 20131127
  Transmission Date: 20140711
  Serious: Yes (Death, Hospitalization, Other)
  Sender: FDA-Public Use
  Company Number: US-PFIZER INC-2013336120

PATIENT
  Sex: Male

DRUGS (7)
  1. LYRICA [Suspect]
     Indication: BRACHIAL PLEXUS INJURY
     Dosage: 225 MG, 2X/DAY
     Route: 048
     Dates: end: 201208
  2. LYRICA [Suspect]
     Dosage: 300 MG, 2X/DAY
     Route: 048
     Dates: start: 201208, end: 201209
  3. LYRICA [Suspect]
     Dosage: 225 MG, 2X/DAY
     Route: 048
     Dates: start: 201209
  4. IMMUNE GLOBULIN [Suspect]
     Dosage: UNK
     Route: 042
  5. GEMFIBROZIL [Concomitant]
     Dosage: UNK
  6. CLONIDINE [Concomitant]
     Indication: HYPERTENSION
     Dosage: UNK
  7. PLAVIX [Concomitant]
     Indication: STENT PLACEMENT
     Dosage: UNK

REACTIONS (4)
  - Off label use [Fatal]
  - Guillain-Barre syndrome [Fatal]
  - Pneumonia [Unknown]
  - Malaise [Unknown]
